FAERS Safety Report 7762836-9 (Version None)
Quarter: 2011Q3

REPORT INFORMATION
  Report Type: 
  Country: None (occurrence: None)
  Receive Date: 20110920
  Receipt Date: 20110909
  Transmission Date: 20111222
  Serious: Yes (Disabling, Other)
  Sender: FDA-Public Use
  Company Number: US-MERCK-0707USA01899

PATIENT
  Age: 65 Year
  Sex: Female
  Weight: 56 kg

DRUGS (4)
  1. PREVACID [Concomitant]
     Indication: GASTROOESOPHAGEAL REFLUX DISEASE
     Route: 065
     Dates: start: 20030101, end: 20070101
  2. CORTICOSTEROIDS (UNSPECIFIED) [Concomitant]
     Route: 065
     Dates: start: 20030101, end: 20070101
  3. PREMPRO [Concomitant]
     Route: 065
  4. FOSAMAX [Suspect]
     Indication: OSTEOPOROSIS
     Route: 048
     Dates: start: 20031219, end: 20070626

REACTIONS (23)
  - INSOMNIA [None]
  - OSTEOARTHRITIS [None]
  - CATARACT [None]
  - OEDEMA MOUTH [None]
  - SPINAL COLUMN STENOSIS [None]
  - INTERVERTEBRAL DISC PROTRUSION [None]
  - SPINAL OSTEOARTHRITIS [None]
  - INTERVERTEBRAL DISC DEGENERATION [None]
  - ORAL INFECTION [None]
  - ELECTROCARDIOGRAM T WAVE INVERSION [None]
  - NORMAL TENSION GLAUCOMA [None]
  - ABSCESS [None]
  - INTERVERTEBRAL DISC SPACE NARROWING [None]
  - NECK PAIN [None]
  - OSTEONECROSIS OF JAW [None]
  - IMPAIRED HEALING [None]
  - SINUS ARRHYTHMIA [None]
  - ORAL PAIN [None]
  - NERVE COMPRESSION [None]
  - PAIN IN EXTREMITY [None]
  - AUTOIMMUNE THYROIDITIS [None]
  - BONE LOSS [None]
  - LIVER FUNCTION TEST ABNORMAL [None]
